FAERS Safety Report 13575917 (Version 2)
Quarter: 2017Q2

REPORT INFORMATION
  Report Type: Spontaneous
  Country: US (occurrence: US)
  Receive Date: 20170524
  Receipt Date: 20170615
  Transmission Date: 20170830
  Serious: Yes (Other)
  Sender: FDA-Public Use
  Company Number: US-PFIZER INC-2017224452

PATIENT
  Age: 49 Year
  Sex: Male

DRUGS (7)
  1. UROXATRAL [Suspect]
     Active Substance: ALFUZOSIN HYDROCHLORIDE
     Dosage: UNK
  2. WELLBUTRIN [Suspect]
     Active Substance: BUPROPION HYDROCHLORIDE
     Dosage: 150 MG, DAILY
  3. HYDROMORPHONE HYDROCHLORIDE. [Suspect]
     Active Substance: HYDROMORPHONE HYDROCHLORIDE
     Dosage: UNK
  4. TESTOSTERONE CIPIONATE [Suspect]
     Active Substance: TESTOSTERONE
     Dosage: 200 MG, (EVERY TWO WEEKS)
  5. CYMBALTA [Suspect]
     Active Substance: DULOXETINE HYDROCHLORIDE
     Dosage: 60 MG, DAILY
  6. VITAMIN D [Suspect]
     Active Substance: CHOLECALCIFEROL
     Dosage: 2000 IU, DAILY
  7. METHOCARBAMOL. [Suspect]
     Active Substance: METHOCARBAMOL
     Dosage: UNK

REACTIONS (7)
  - Fall [Unknown]
  - Vertigo positional [Unknown]
  - Concussion [Unknown]
  - Malaise [Unknown]
  - Limb injury [Unknown]
  - Dizziness [Unknown]
  - Accident at work [Unknown]

NARRATIVE: CASE EVENT DATE: 201702
